FAERS Safety Report 25963666 (Version 1)
Quarter: 2025Q4

REPORT INFORMATION
  Report Type: Spontaneous
  Country: US (occurrence: US)
  Receive Date: 20251027
  Receipt Date: 20251027
  Transmission Date: 20260117
  Serious: No
  Sender: NOVARTIS
  Company Number: US-002147023-NVSC2025US165082

PATIENT
  Sex: Male

DRUGS (1)
  1. TISAGENLECLEUCEL [Suspect]
     Active Substance: TISAGENLECLEUCEL
     Indication: B-cell type acute leukaemia
     Dosage: 1.4 X 10^8 CAR T CELLS, ONCE/SINGLE
     Route: 042

REACTIONS (2)
  - Treatment failure [Unknown]
  - CD19 lymphocytes increased [Unknown]
